FAERS Safety Report 9201398 (Version 1)
Quarter: 2013Q2

REPORT INFORMATION
  Report Type: Spontaneous
  Country: US (occurrence: US)
  Receive Date: 20130401
  Receipt Date: 20130401
  Transmission Date: 20140414
  Serious: Yes (Death, Other)
  Sender: FDA-Public Use
  Company Number: US-ENDO PHARMACEUTICALS INC.-PERC20130038

PATIENT
  Age: 70 Year
  Sex: Female
  Weight: 38.14 kg

DRUGS (4)
  1. PERCOCET [Suspect]
     Indication: PAIN
     Dosage: 15/975 MG
     Route: 048
  2. PERCOCET [Suspect]
     Indication: HIP FRACTURE
  3. LIBRIUM [Concomitant]
     Indication: PRODUCT USED FOR UNKNOWN INDICATION
     Dosage: UNKNOWN
     Route: 065
  4. RESTORIL [Concomitant]
     Indication: INSOMNIA
     Dosage: UNKNOWN
     Route: 065

REACTIONS (3)
  - Cardiac arrest [Fatal]
  - Pneumonia aspiration [Not Recovered/Not Resolved]
  - Coma [Not Recovered/Not Resolved]
